FAERS Safety Report 4489222-1 (Version None)
Quarter: 2004Q4

REPORT INFORMATION
  Report Type: 
  Country: None (occurrence: None)
  Receive Date: 20041029
  Receipt Date: 20040624
  Transmission Date: 20050328
  Serious: Yes (Other)
  Sender: FDA-Public Use
  Company Number: JP-MERCK-0407USA00376

PATIENT
  Age: 61 Year
  Sex: Male

DRUGS (6)
  1. SINGULAIR [Suspect]
     Indication: ASTHMA
     Route: 048
     Dates: start: 20040414, end: 20040608
  2. SEREVENT [Concomitant]
     Route: 055
     Dates: start: 20031105
  3. FLUTICASONE PROPIONATE [Concomitant]
     Route: 055
     Dates: start: 20030129
  4. SELBEX [Concomitant]
     Route: 048
     Dates: start: 20030129
  5. GASTER [Concomitant]
     Route: 048
     Dates: start: 20030129
  6. MUCODYNE [Concomitant]
     Route: 048
     Dates: start: 20030312

REACTIONS (6)
  - ALANINE AMINOTRANSFERASE INCREASED [None]
  - ASPARTATE AMINOTRANSFERASE INCREASED [None]
  - BLOOD ALKALINE PHOSPHATASE INCREASED [None]
  - BLOOD BILIRUBIN INCREASED [None]
  - BLOOD LACTATE DEHYDROGENASE INCREASED [None]
  - HEPATIC FUNCTION ABNORMAL [None]
